FAERS Safety Report 6097605-1 (Version None)
Quarter: 2009Q1

REPORT INFORMATION
  Report Type: 
  Country: None (occurrence: None)
  Receive Date: 20090227
  Receipt Date: 20090114
  Transmission Date: 20090719
  Serious: No
  Sender: FDA-Public Use
  Company Number: A0761522A

PATIENT
  Age: 58 Year
  Sex: Male

DRUGS (3)
  1. SUMATRIPTAN [Suspect]
     Indication: MIGRAINE
     Dosage: 6MG SINGLE DOSE
     Route: 042
     Dates: start: 20081204, end: 20081204
  2. AMERGE [Concomitant]
  3. VYTORIN [Concomitant]

REACTIONS (1)
  - DRUG INEFFECTIVE [None]
